FAERS Safety Report 9470013 (Version 1)
Quarter: 2013Q3

REPORT INFORMATION
  Report Type: Spontaneous
  Country: US (occurrence: None)
  Receive Date: 20130820
  Receipt Date: 20130820
  Transmission Date: 20140515
  Serious: Yes (Hospitalization)
  Sender: FDA-Public Use
  Company Number: None

PATIENT
  Age: 83 Year
  Sex: Male
  Weight: 84.05 kg

DRUGS (2)
  1. 5-FLUOROURACIL (5-FU) [Suspect]
  2. MITOMYCIN-C [Suspect]

REACTIONS (5)
  - Pneumonia [None]
  - Dyspnoea [None]
  - Cough [None]
  - Stomatitis [None]
  - Bronchitis [None]
